FAERS Safety Report 12416054 (Version 1)
Quarter: 2016Q2

REPORT INFORMATION
  Report Type: Spontaneous
  Country: CN (occurrence: CN)
  Receive Date: 20160530
  Receipt Date: 20160530
  Transmission Date: 20160815
  Serious: Yes (Other)
  Sender: FDA-Public Use
  Company Number: CN-009507513-1605CHN011317

PATIENT
  Age: 69 Year
  Sex: Female

DRUGS (3)
  1. RECOMBINANT HUMAN INTERLEUKIN-2 (125ALA) [Concomitant]
     Active Substance: ALDESLEUKIN
     Dosage: UNK, Q3W(TUESDAY, THURSDAY AND SATURDAY)
     Dates: start: 201603
  2. INTRON A [Suspect]
     Active Substance: INTERFERON ALFA-2B
     Indication: MALIGNANT MELANOMA
     Dosage: 3 MIU, Q3W
     Route: 058
     Dates: start: 2014
  3. INTRON A [Suspect]
     Active Substance: INTERFERON ALFA-2B
     Dosage: 6 MIU, Q3W(MONDAY, WEDNESDAY AND FRIDAY)
     Route: 058
     Dates: start: 201603

REACTIONS (2)
  - Metastatic malignant melanoma [Unknown]
  - Daydreaming [Not Recovered/Not Resolved]

NARRATIVE: CASE EVENT DATE: 201603
